FAERS Safety Report 21848403 (Version 1)
Quarter: 2023Q1

REPORT INFORMATION
  Report Type: Spontaneous
  Country: JP (occurrence: JP)
  Receive Date: 20230111
  Receipt Date: 20230111
  Transmission Date: 20230418
  Serious: No
  Sender: FDA-Public Use
  Company Number: JP-CHEMOCENTRYX, INC.-2022JPCCXI0633

PATIENT

DRUGS (6)
  1. TAVNEOS [Suspect]
     Active Substance: AVACOPAN
     Indication: Anti-neutrophil cytoplasmic antibody positive vasculitis
     Dosage: 10 MG (10 MG,1 IN 1 D)
     Route: 048
     Dates: start: 202211, end: 2022
  2. TAVNEOS [Suspect]
     Active Substance: AVACOPAN
     Dosage: 20 MG, QD
     Route: 048
     Dates: start: 202212
  3. PREDNISONE [Concomitant]
     Active Substance: PREDNISONE
     Indication: Product used for unknown indication
     Dosage: 7.5 MG
     Route: 065
     Dates: start: 202206
  4. PREDNISONE [Concomitant]
     Active Substance: PREDNISONE
     Dosage: 5 MG
     Route: 065
     Dates: start: 202209
  5. PREDNISONE [Concomitant]
     Active Substance: PREDNISONE
     Dosage: 4 MG
     Route: 065
     Dates: start: 202211
  6. PREDNISONE [Concomitant]
     Active Substance: PREDNISONE
     Dosage: 3 MG
     Route: 065
     Dates: start: 202212

REACTIONS (1)
  - Off label use [Unknown]

NARRATIVE: CASE EVENT DATE: 20221101
